FAERS Safety Report 4879321-4 (Version None)
Quarter: 2005Q4

REPORT INFORMATION
  Report Type: 
  Country: None (occurrence: None)
  Receive Date: 20051207
  Receipt Date: 20041216
  Transmission Date: 20060501
  Serious: Yes (Other)
  Sender: FDA-Public Use
  Company Number: 2004082058

PATIENT
  Age: 37 Year
  Sex: Male
  Weight: 102.0593 kg

DRUGS (6)
  1. VIAGRA [Suspect]
     Indication: ILL-DEFINED DISORDER
     Dosage: UNK (50 MG), ORAL
     Route: 048
     Dates: start: 20040101
  2. VIAGRA [Suspect]
     Indication: ILL-DEFINED DISORDER
     Dosage: UNK (50 MG), ORAL
     Route: 048
     Dates: start: 20051001
  3. NICOTINIC ACID [Concomitant]
  4. ATORVASTATIN CALCIUM [Concomitant]
  5. ALL OTHER THERAPEUTIC PRODUCTS (ALL OTHER THERAPEUTIC PRODUCTS) [Concomitant]
  6. CETIRIZINE HCL [Concomitant]

REACTIONS (8)
  - CHROMATURIA [None]
  - DRUG INEFFECTIVE [None]
  - ERECTILE DYSFUNCTION [None]
  - ERECTION INCREASED [None]
  - HYPOAESTHESIA [None]
  - PAIN [None]
  - PENIS DISORDER [None]
  - TENDERNESS [None]
